FAERS Safety Report 11689300 (Version 2)
Quarter: 2015Q4

REPORT INFORMATION
  Report Type: Spontaneous
  Country: GB (occurrence: GB)
  Receive Date: 20151102
  Receipt Date: 20151104
  Transmission Date: 20160304
  Serious: Yes (Other)
  Sender: FDA-Public Use
  Company Number: GB-009507513-1510GBR011489

PATIENT
  Age: 69 Year
  Sex: Male
  Weight: 124 kg

DRUGS (5)
  1. ORAMORPH [Concomitant]
     Active Substance: MORPHINE SULFATE
  2. ASPIRIN. [Concomitant]
     Active Substance: ASPIRIN
  3. SIMVASTATIN. [Concomitant]
     Active Substance: SIMVASTATIN
  4. RAMIPRIL. [Concomitant]
     Active Substance: RAMIPRIL
  5. ERTAPENEM SODIUM [Suspect]
     Active Substance: ERTAPENEM SODIUM
     Indication: POSTOPERATIVE WOUND INFECTION
     Dosage: 1 G, UNK
     Route: 042
     Dates: start: 20151012, end: 20151012

REACTIONS (1)
  - Petit mal epilepsy [Recovered/Resolved]

NARRATIVE: CASE EVENT DATE: 20151012
